FAERS Safety Report 6732463-0 (Version None)
Quarter: 2010Q2

REPORT INFORMATION
  Report Type: 
  Country: None (occurrence: None)
  Receive Date: 20100519
  Receipt Date: 20100512
  Transmission Date: 20101027
  Serious: Yes (Other)
  Sender: FDA-Public Use
  Company Number: GXKR2010DE05298

PATIENT
  Age: 70 Year
  Sex: Male

DRUGS (20)
  1. FURORESE (NGX) [Suspect]
     Dosage: 2 ML, QD
     Route: 042
     Dates: start: 20070718, end: 20070810
  2. DELIX [Concomitant]
     Dosage: 5 MG, QD
     Route: 048
  3. ACTRAPHANE HM [Concomitant]
     Route: 058
  4. KALINOR-BRAUSETABLETTEN [Concomitant]
     Dosage: UNK
     Route: 048
     Dates: start: 20070720
  5. ENOXAPARIN SODIUM [Concomitant]
     Dosage: 0.6 ML, QD
     Route: 058
     Dates: start: 20070718
  6. FUROSEMIDE [Concomitant]
     Dosage: 40 MG, BID
     Route: 048
     Dates: end: 20070717
  7. TORSEMIDE [Concomitant]
     Dosage: 10 MG, QD
     Route: 048
     Dates: end: 20070715
  8. ALDACTONE [Concomitant]
     Dosage: 25 MG, QD
     Route: 048
     Dates: end: 20070720
  9. NORVASC [Concomitant]
     Dosage: 5 MG, BID
     Route: 048
  10. SIMVASTATIN [Concomitant]
     Dosage: 20 MG, QD
     Route: 048
  11. DIBLOCIN [Concomitant]
     Dosage: 4 MG, BID
     Route: 048
  12. UNACID PD ORAL [Concomitant]
     Dosage: UNK
     Route: 048
     Dates: start: 20070718
  13. ALLOPURINOL [Concomitant]
     Dosage: 300 MG, QD
     Route: 048
  14. ACETYLSALICYLIC ACID [Concomitant]
     Dosage: 100 MG, QD
     Route: 048
  15. NOVALGIN                                /SCH/ [Concomitant]
     Dosage: 90 GTT, TID
     Route: 048
     Dates: start: 20070717
  16. NOVALGIN                                /SCH/ [Concomitant]
     Dosage: 30 GTT, BID
     Route: 048
     Dates: start: 20070723, end: 20070723
  17. PERFALGAN [Concomitant]
     Dosage: UNK
     Route: 042
     Dates: start: 20070717, end: 20070717
  18. TEGRETOL [Concomitant]
     Dosage: 200 MG, BID
     Route: 048
  19. ZOLOFT [Concomitant]
     Dosage: 50 MG, QD
     Route: 048
     Dates: start: 20070730
  20. ARUFIL [Concomitant]
     Dosage: 4 GTT, QD
     Route: 031

REACTIONS (1)
  - RENAL FAILURE [None]
